FAERS Safety Report 8051815-2 (Version None)
Quarter: 2012Q1

REPORT INFORMATION
  Report Type: 
  Country: None (occurrence: None)
  Receive Date: 20120118
  Receipt Date: 20120105
  Transmission Date: 20120608
  Serious: Yes (Life-Threatening)
  Sender: FDA-Public Use
  Company Number: US-RANBAXY-2012US-51799

PATIENT
  Age: 65 Year
  Sex: Male

DRUGS (2)
  1. PREDNISONE [Suspect]
     Indication: OEDEMA
     Route: 065
  2. BENAZEPRIL HYDROCHLORIDE [Suspect]
     Indication: HYPERTENSION
     Dosage: UNK
     Route: 065

REACTIONS (4)
  - ANGIOEDEMA [None]
  - RASH ERYTHEMATOUS [None]
  - DYSPNOEA [None]
  - WITHDRAWAL SYNDROME [None]
